FAERS Safety Report 7305047-3 (Version None)
Quarter: 2011Q1

REPORT INFORMATION
  Report Type: 
  Country: None (occurrence: None)
  Receive Date: 20110222
  Receipt Date: 20110209
  Transmission Date: 20110831
  Serious: Yes (Death)
  Sender: FDA-Public Use
  Company Number: CA-CELGENEUS-028-21880-11021264

PATIENT
  Sex: Male

DRUGS (4)
  1. FLOMAX [Concomitant]
     Route: 065
  2. DECADRON [Concomitant]
     Route: 065
  3. COUMADIN [Concomitant]
     Route: 065
  4. REVLIMID [Suspect]
     Indication: MULTIPLE MYELOMA
     Route: 048

REACTIONS (1)
  - DEATH [None]
